FAERS Safety Report 19203776 (Version 1)
Quarter: 2021Q2

REPORT INFORMATION
  Report Type: Spontaneous
  Country: SA (occurrence: SA)
  Receive Date: 20210503
  Receipt Date: 20210503
  Transmission Date: 20210717
  Serious: Yes (Other)
  Sender: FDA-Public Use
  Company Number: SA-B.I. PHARMACEUTICALS,INC./RIDGEFIELD-2021-BI-099741

PATIENT

DRUGS (1)
  1. JARDIANCE [Suspect]
     Active Substance: EMPAGLIFLOZIN
     Indication: PRODUCT USED FOR UNKNOWN INDICATION

REACTIONS (8)
  - Fournier^s gangrene [Unknown]
  - Diabetic ketoacidosis [Unknown]
  - Genital infection fungal [Unknown]
  - Fracture [Unknown]
  - Urinary tract infection [Unknown]
  - Foot amputation [Unknown]
  - Leg amputation [Unknown]
  - Neoplasm malignant [Unknown]
